FAERS Safety Report 14728208 (Version 2)
Quarter: 2018Q2

REPORT INFORMATION
  Report Type: Spontaneous
  Country: JP (occurrence: JP)
  Receive Date: 20180406
  Receipt Date: 20180629
  Transmission Date: 20180711
  Serious: Yes (Other)
  Sender: FDA-Public Use
  Company Number: JP-JNJFOC-20180406796

PATIENT
  Age: 14 Year
  Sex: Female

DRUGS (4)
  1. REMICADE [Suspect]
     Active Substance: INFLIXIMAB
     Indication: IRITIS
     Route: 042
  2. METHOTREXATE. [Suspect]
     Active Substance: METHOTREXATE
     Indication: PRODUCT USED FOR UNKNOWN INDICATION
     Route: 065
  3. REMICADE [Suspect]
     Active Substance: INFLIXIMAB
     Indication: KERATOPATHY
     Route: 042
  4. REMICADE [Suspect]
     Active Substance: INFLIXIMAB
     Indication: CATARACT
     Route: 042

REACTIONS (4)
  - Eye inflammation [Unknown]
  - Off label use [Unknown]
  - Product use in unapproved indication [Unknown]
  - Macular oedema [Recovered/Resolved]
